FAERS Safety Report 8215999-5 (Version None)
Quarter: 2012Q1

REPORT INFORMATION
  Report Type: 
  Country: None (occurrence: None)
  Receive Date: 20120316
  Receipt Date: 20120312
  Transmission Date: 20120608
  Serious: Yes (Other)
  Sender: FDA-Public Use
  Company Number: US-PFIZER INC-2012066291

PATIENT

DRUGS (1)
  1. LYRICA [Suspect]
     Dosage: UNK

REACTIONS (5)
  - OROPHARYNGEAL PAIN [None]
  - PAIN [None]
  - PANIC ATTACK [None]
  - INFLUENZA [None]
  - HYPERTENSION [None]
